FAERS Safety Report 6280185-5 (Version None)
Quarter: 2009Q3

REPORT INFORMATION
  Report Type: 
  Country: None (occurrence: None)
  Receive Date: 20090723
  Receipt Date: 20090717
  Transmission Date: 20100115
  Serious: Yes (Death)
  Sender: FDA-Public Use
  Company Number: US-GENENTECH-287153

PATIENT
  Sex: Male

DRUGS (6)
  1. AVASTIN [Suspect]
     Indication: NON-SMALL CELL LUNG CANCER
     Dosage: 350 MG, SINGLE
  2. AVASTIN [Suspect]
     Dosage: 700 MG, SINGLE
  3. AVASTIN [Suspect]
     Dosage: 350 MG, SINGLE
  4. AVASTIN [Suspect]
     Dosage: 350 MG, SINGLE
  5. TAXOL [Concomitant]
     Indication: NON-SMALL CELL LUNG CANCER
     Dosage: UNK
  6. CARBOPLATIN [Concomitant]
     Indication: NON-SMALL CELL LUNG CANCER
     Dosage: UNK

REACTIONS (3)
  - DEATH [None]
  - HAEMOPTYSIS [None]
  - MALAISE [None]
